FAERS Safety Report 8435384-0 (Version None)
Quarter: 2012Q2

REPORT INFORMATION
  Report Type: 
  Country: None (occurrence: None)
  Receive Date: 20120614
  Receipt Date: 20120607
  Transmission Date: 20120825
  Serious: Yes (Other)
  Sender: FDA-Public Use
  Company Number: PHHY2012CA042694

PATIENT
  Sex: Female

DRUGS (3)
  1. PERINDOPRIL ERBUMINE [Concomitant]
     Dosage: 8 MG, DAILY
  2. TASIGNA [Suspect]
     Indication: CHRONIC MYELOID LEUKAEMIA
     Dosage: 300 MG, BID
     Route: 048
     Dates: start: 20120511, end: 20120516
  3. SPIRONOLACTONE [Concomitant]
     Dosage: 25 MG, DAILY

REACTIONS (4)
  - HEADACHE [None]
  - ABDOMINAL PAIN UPPER [None]
  - LIPASE INCREASED [None]
  - PANCREATITIS [None]
